FAERS Safety Report 18957127 (Version 1)
Quarter: 2021Q1

REPORT INFORMATION
  Report Type: Spontaneous
  Country: DE (occurrence: DE)
  Receive Date: 20210302
  Receipt Date: 20210302
  Transmission Date: 20210420
  Serious: Yes (Hospitalization)
  Sender: FDA-Public Use
  Company Number: DE-B.I. PHARMACEUTICALS,INC./RIDGEFIELD-2021-BI-085311

PATIENT
  Age: 16 Year
  Sex: Male
  Weight: 80 kg

DRUGS (10)
  1. AZITHROMYCIN ANHYDROUS. [Concomitant]
     Active Substance: AZITHROMYCIN ANHYDROUS
     Indication: INFECTION PROPHYLAXIS
     Dosage: DAILY DOSE: 1500 MG MILLGRAM(S) EVERY WEEKS 3 SEPARATED DOSES
     Route: 048
  2. IPRATROPIUM BROMIDE. [Suspect]
     Active Substance: IPRATROPIUM BROMIDE
     Indication: CYSTIC FIBROSIS
     Dosage: DAILY DOSE: 30 DF DOSAGE FORM EVERY DAYS 3 SEPARATED DOSES
     Route: 055
     Dates: start: 2012
  3. NACL [Concomitant]
     Active Substance: SODIUM CHLORIDE
     Indication: CYSTIC FIBROSIS
     Dosage: DAILY DOSE: 3 DF DOSAGE FORM EVERY 2 DAYS 3 SEPARATED DOSES
     Route: 055
     Dates: start: 2012
  4. DORNASE ALFA. [Concomitant]
     Active Substance: DORNASE ALFA
     Indication: CYSTIC FIBROSIS
     Dosage: DAILY DOSE: 2500 IU INTERNATIONAL UNIT(S) EVERY DAYS
     Route: 055
     Dates: start: 2012
  5. COLECALCIFEROL [Concomitant]
     Active Substance: CHOLECALCIFEROL
     Indication: PRODUCT USED FOR UNKNOWN INDICATION
     Dosage: DAILY DOSE: 2000 IU INTERNATIONAL UNIT(S) EVERY DAYS 2 SEPARATED DOSES
     Route: 048
     Dates: start: 2012
  6. ZINKOROTAT [Concomitant]
     Active Substance: ZINC OROTATE
     Indication: PRODUCT USED FOR UNKNOWN INDICATION
     Dosage: DAILY DOSE: 20 MG MILLGRAM(S) EVERY DAYS
     Route: 048
     Dates: start: 2012
  7. SALBUTAMOL [Suspect]
     Active Substance: ALBUTEROL
     Indication: CYSTIC FIBROSIS
     Dosage: DAILY DOSE: 24 GTT DROP(S) EVERY DAYS 3 SEPARATED DOSES
     Route: 055
     Dates: start: 2012
  8. COLISTIN [Concomitant]
     Active Substance: COLISTIN
     Indication: CYSTIC FIBROSIS
     Dosage: DAILY DOSE: 4 MIU IU(1,000,000S) EVERY 2 DAYS 2 SEPARATED DOSES
     Route: 055
     Dates: start: 201505
  9. NACL [Concomitant]
     Active Substance: SODIUM CHLORIDE
     Dosage: DAILY DOSE: 3 DF DOSAGE FORM EVERY 2 DAYS 3 SEPARATED DOSES??NACL 7%
     Route: 055
     Dates: start: 2012
  10. URSODEOXYCHOLIC ACID [Concomitant]
     Active Substance: URSODIOL
     Indication: CYSTIC FIBROSIS
     Dosage: DAILY DOSE: 1000 MG MILLGRAM(S) EVERY DAYS 2 SEPARATED DOSES
     Route: 048

REACTIONS (5)
  - Pneumonia [Recovering/Resolving]
  - Treatment noncompliance [Recovering/Resolving]
  - Infective pulmonary exacerbation of cystic fibrosis [Recovering/Resolving]
  - Condition aggravated [Recovering/Resolving]
  - Product administration error [Recovering/Resolving]

NARRATIVE: CASE EVENT DATE: 20180821
